FAERS Safety Report 7851325-9 (Version None)
Quarter: 2011Q4

REPORT INFORMATION
  Report Type: 
  Country: None (occurrence: None)
  Receive Date: 20111026
  Receipt Date: 20111021
  Transmission Date: 20120403
  Serious: Yes (Hospitalization, Other)
  Sender: FDA-Public Use
  Company Number: US-SANOFI-AVENTIS-2011SA069942

PATIENT
  Age: 88 Year
  Sex: Female
  Weight: 49.89 kg

DRUGS (3)
  1. HUMALOG [Concomitant]
     Dosage: PER SLIDING SCALE
  2. SOLOSTAR [Suspect]
     Dates: start: 20010101
  3. LANTUS [Suspect]
     Dosage: 10 UNITS IN AM AND 2 UNITS IN PM
     Route: 058
     Dates: start: 20010101

REACTIONS (2)
  - PNEUMONIA [None]
  - CORNEAL TRANSPLANT [None]
